FAERS Safety Report 8236906-5 (Version None)
Quarter: 2012Q1

REPORT INFORMATION
  Report Type: 
  Country: None (occurrence: None)
  Receive Date: 20120327
  Receipt Date: 20120312
  Transmission Date: 20120608
  Serious: Yes (Other)
  Sender: FDA-Public Use
  Company Number: TW-B.I. PHARMACEUTICALS,INC./RIDGEFIELD-2012-EU-01725GL

PATIENT
  Age: 52 Year
  Sex: Female

DRUGS (6)
  1. TELMISARTAN [Suspect]
     Indication: HYPERTENSION
     Dosage: 40 MG
     Dates: start: 20080201
  2. BISOPROLOL FUMARATE [Suspect]
     Indication: HYPERTENSION
     Dates: start: 20080201
  3. BISOPROLOL FUMARATE [Suspect]
     Indication: CARDIOVASCULAR DISORDER
  4. HALOPERIDOL [Concomitant]
  5. TELMISARTAN [Suspect]
     Indication: CARDIOVASCULAR DISORDER
  6. LITHIUM CARBONATE [Suspect]
     Indication: SCHIZOAFFECTIVE DISORDER
     Dosage: 900 MG
     Dates: start: 20080201

REACTIONS (7)
  - NAUSEA [None]
  - VOMITING [None]
  - RENAL FAILURE ACUTE [None]
  - TOXICITY TO VARIOUS AGENTS [None]
  - ALTERED STATE OF CONSCIOUSNESS [None]
  - DIARRHOEA [None]
  - HYPERKALAEMIA [None]
